FAERS Safety Report 21743356 (Version 11)
Quarter: 2024Q3

REPORT INFORMATION
  Report Type: Spontaneous
  Country: CA (occurrence: CA)
  Receive Date: 20221217
  Receipt Date: 20240919
  Transmission Date: 20241016
  Serious: Yes (Other)
  Sender: CELLTRION
  Company Number: CA-CELLTRION INC.-2022CA001392

PATIENT

DRUGS (22)
  1. INFLECTRA [Suspect]
     Active Substance: INFLIXIMAB-DYYB
     Indication: Crohn^s disease
     Dosage: 500 MG AT 0, 2, 6 THEN Q 8 WEEKS
     Route: 042
     Dates: start: 20210927
  2. INFLECTRA [Suspect]
     Active Substance: INFLIXIMAB-DYYB
     Dosage: 500 MG AT 0, 2, 6 THEN Q 8 WEEKS
     Route: 042
     Dates: start: 20211110
  3. INFLECTRA [Suspect]
     Active Substance: INFLIXIMAB-DYYB
     Dosage: 500 MG AT 0, 2, 6 THEN Q 8 WEEKS
     Route: 042
     Dates: start: 20220105
  4. INFLECTRA [Suspect]
     Active Substance: INFLIXIMAB-DYYB
     Dosage: 500 MG AT 0, 2, 6 THEN Q 8 WEEKS
     Route: 042
     Dates: start: 20220302, end: 20220302
  5. INFLECTRA [Suspect]
     Active Substance: INFLIXIMAB-DYYB
     Dosage: 500 MG AT 0, 2, 6 THEN Q 8 WEEKS
     Route: 042
     Dates: start: 20220427
  6. INFLECTRA [Suspect]
     Active Substance: INFLIXIMAB-DYYB
     Dosage: 500 MG AT 0, 2, 6 THEN Q 8 WEEKS
     Route: 042
     Dates: start: 20220622
  7. INFLECTRA [Suspect]
     Active Substance: INFLIXIMAB-DYYB
     Dosage: 500 MG AT 0, 2, 6 THEN Q 8 WEEKS
     Route: 042
     Dates: start: 20221014
  8. INFLECTRA [Suspect]
     Active Substance: INFLIXIMAB-DYYB
     Dosage: 500 MG AT 0, 2, 6 THEN Q 8 WEEKS
     Route: 042
     Dates: start: 20221206
  9. INFLECTRA [Suspect]
     Active Substance: INFLIXIMAB-DYYB
     Dosage: 700 MG, AFTER 6 WEEKS AND 6 DAYS (PRESCRIBED EVERY 7 WEEKS)
     Route: 042
     Dates: start: 20230125
  10. INFLECTRA [Suspect]
     Active Substance: INFLIXIMAB-DYYB
     Dosage: 700 MG, EVERY 7 WEEKS
     Route: 042
     Dates: start: 20230314
  11. INFLECTRA [Suspect]
     Active Substance: INFLIXIMAB-DYYB
     Dosage: 700 MG, EVERY 7 WEEKS
     Route: 042
     Dates: start: 20230502
  12. INFLECTRA [Suspect]
     Active Substance: INFLIXIMAB-DYYB
     Dosage: 700 MG, EVERY 7 WEEKS
     Route: 042
     Dates: start: 20230619
  13. INFLECTRA [Suspect]
     Active Substance: INFLIXIMAB-DYYB
     Dosage: 700 MG, EVERY 7 WEEKS
     Route: 042
     Dates: start: 20230808
  14. INFLECTRA [Suspect]
     Active Substance: INFLIXIMAB-DYYB
     Dosage: 700 MG, AFTER 9 WEEKS AND 1 DAY (PRESCRIBED EVERY 7 WEEKS)
     Route: 042
     Dates: start: 20231011
  15. INFLECTRA [Suspect]
     Active Substance: INFLIXIMAB-DYYB
     Dosage: 700 MG, EVERY 7 WEEKS
     Route: 042
     Dates: start: 20231128
  16. INFLECTRA [Suspect]
     Active Substance: INFLIXIMAB-DYYB
     Dosage: 700 MG, EVERY 7 WEEKS
     Route: 042
     Dates: start: 20240116
  17. INFLECTRA [Suspect]
     Active Substance: INFLIXIMAB-DYYB
     Dosage: 700 MG, EVERY 7 WEEKS
     Route: 042
     Dates: start: 20240730
  18. INFLECTRA [Suspect]
     Active Substance: INFLIXIMAB-DYYB
     Dosage: 700 MG, EVERY 7 WEEKS
     Route: 042
     Dates: start: 20240730
  19. INFLECTRA [Suspect]
     Active Substance: INFLIXIMAB-DYYB
     Dosage: 800 MG, EVERY 6 WEEKS
     Route: 042
     Dates: start: 20240910
  20. IRON [Concomitant]
     Active Substance: IRON
     Dosage: 600 MG, PO
     Route: 048
  21. FOLIC ACID [Concomitant]
     Active Substance: FOLIC ACID
     Dosage: 1 DF
  22. METHOTREXATE [Concomitant]
     Active Substance: METHOTREXATE
     Dosage: 15 MG
     Route: 048

REACTIONS (13)
  - Anastomotic ulcer [Not Recovered/Not Resolved]
  - Abscess intestinal [Not Recovered/Not Resolved]
  - Condition aggravated [Not Recovered/Not Resolved]
  - Tooth abscess [Recovered/Resolved]
  - Tooth extraction [Unknown]
  - Haemoglobin decreased [Not Recovered/Not Resolved]
  - Iron deficiency anaemia [Not Recovered/Not Resolved]
  - Tooth infection [Recovered/Resolved]
  - Gastrointestinal bacterial infection [Recovered/Resolved]
  - Nerve compression [Recovered/Resolved]
  - Off label use [Unknown]
  - Off label use [Unknown]
  - Intentional product use issue [Unknown]

NARRATIVE: CASE EVENT DATE: 20220101
